FAERS Safety Report 18811855 (Version 1)
Quarter: 2021Q1

REPORT INFORMATION
  Report Type: Other
  Country: US (occurrence: US)
  Receive Date: 20210130
  Receipt Date: 20210130
  Transmission Date: 20210419
  Serious: Yes (Life-Threatening, Hospitalization, Other)
  Sender: FDA-Public Use
  Company Number: US-THE ACME LABORATORIES LTD-2106067

PATIENT
  Age: 36 Year
  Sex: Male

DRUGS (1)
  1. ZOLPIDEM TARTRATE. [Suspect]
     Active Substance: ZOLPIDEM TARTRATE
     Indication: PRODUCT USED FOR UNKNOWN INDICATION
     Route: 048

REACTIONS (14)
  - Seizure [Recovering/Resolving]
  - Conjunctival haemorrhage [Recovering/Resolving]
  - Suicide attempt [Unknown]
  - Disorientation [Recovering/Resolving]
  - Hyperhidrosis [Recovering/Resolving]
  - Oliguria [Recovering/Resolving]
  - Renal failure [Recovering/Resolving]
  - Aggression [Recovering/Resolving]
  - Petechiae [Recovering/Resolving]
  - Metabolic acidosis [Recovering/Resolving]
  - Renal impairment [Not Recovered/Not Resolved]
  - Incoherent [Recovering/Resolving]
  - Rhabdomyolysis [Recovering/Resolving]
  - Overdose [Recovering/Resolving]
